FAERS Safety Report 21383363 (Version 1)
Quarter: 2022Q3

REPORT INFORMATION
  Report Type: Report from Study
  Country: US (occurrence: US)
  Receive Date: 20220927
  Receipt Date: 20220927
  Transmission Date: 20221027
  Serious: Yes (Other)
  Sender: FDA-Public Use
  Company Number: US-ABBVIE-4131135

PATIENT
  Sex: Female

DRUGS (4)
  1. IMBRUVICA [Suspect]
     Active Substance: IBRUTINIB
     Indication: Product used for unknown indication
     Route: 048
     Dates: start: 2020
  2. MODERNA COVID-19 VACCINE [Concomitant]
     Active Substance: ELASOMERAN
     Indication: COVID-19 immunisation
     Dosage: 1 ST DOSE ?1 IN ONCE
     Route: 030
     Dates: start: 20210226, end: 20210226
  3. MODERNA COVID-19 VACCINE [Concomitant]
     Active Substance: ELASOMERAN
     Indication: COVID-19 immunisation
     Dosage: 1 IN ONCE?2ND ONCE
     Route: 030
     Dates: start: 20210326, end: 20210326
  4. MODERNA COVID-19 VACCINE [Concomitant]
     Active Substance: ELASOMERAN
     Indication: COVID-19 immunisation
     Dosage: 3RD DOSE ?1 IN ONCE
     Route: 030
     Dates: start: 20210819, end: 20210819

REACTIONS (9)
  - Arrhythmia [Unknown]
  - Herpes zoster [Not Recovered/Not Resolved]
  - Atrial fibrillation [Unknown]
  - Immunodeficiency [Not Recovered/Not Resolved]
  - Eye disorder [Unknown]
  - Cataract [Unknown]
  - Cardiac ablation [Unknown]
  - Diarrhoea [Unknown]
  - Gastric disorder [Unknown]
